FAERS Safety Report 21813130 (Version 3)
Quarter: 2023Q1

REPORT INFORMATION
  Report Type: Spontaneous
  Country: US (occurrence: US)
  Receive Date: 20230103
  Receipt Date: 20230210
  Transmission Date: 20230418
  Serious: No
  Sender: FDA-Public Use
  Company Number: US-PFIZER INC-PV202200133509

PATIENT
  Age: 72 Year
  Sex: Male

DRUGS (1)
  1. NIVESTYM [Suspect]
     Active Substance: FILGRASTIM-AAFI
     Dosage: 480 UG, CYCLIC (2 WEEKS ON 1 WEEK OFF)

REACTIONS (2)
  - Off label use [Unknown]
  - Hypoacusis [Unknown]
